FAERS Safety Report 18242128 (Version 1)
Quarter: 2020Q3

REPORT INFORMATION
  Report Type: Spontaneous
  Country: US (occurrence: US)
  Receive Date: 20200904
  Receipt Date: 20200904
  Transmission Date: 20201103
  Serious: Yes (Death)
  Sender: FDA-Public Use
  Company Number: None

PATIENT
  Age: 68 Year
  Sex: Male

DRUGS (1)
  1. GEMCITABINE SDV 2GM/52.6ML [Suspect]
     Active Substance: GEMCITABINE HYDROCHLORIDE
     Dosage: OTHER FREQUENCY:OTHER;?
     Route: 042
     Dates: start: 202007, end: 202007

REACTIONS (1)
  - Death [None]

NARRATIVE: CASE EVENT DATE: 20200715
